FAERS Safety Report 11663919 (Version 2)
Quarter: 2015Q4

REPORT INFORMATION
  Report Type: Report from Study
  Country: US (occurrence: US)
  Receive Date: 20151027
  Receipt Date: 20151029
  Transmission Date: 20160304
  Serious: No
  Sender: FDA-Public Use
  Company Number: PHEH2014US014427

PATIENT
  Age: 54 Year
  Sex: Female
  Weight: 55.33 kg

DRUGS (1)
  1. EXJADE [Suspect]
     Active Substance: DEFERASIROX
     Indication: IRON OVERLOAD
     Dosage: 500 MG TAB X 2 AND 250 MG TAB X 1
     Route: 048
     Dates: start: 20140608

REACTIONS (4)
  - Alopecia [Unknown]
  - Serum ferritin increased [Recovered/Resolved]
  - Weight increased [Unknown]
  - Increased appetite [Unknown]

NARRATIVE: CASE EVENT DATE: 20140701
